FAERS Safety Report 8246432-5 (Version None)
Quarter: 2012Q1

REPORT INFORMATION
  Report Type: 
  Country: None (occurrence: None)
  Receive Date: 20120329
  Receipt Date: 20120329
  Transmission Date: 20120608
  Serious: No
  Sender: FDA-Public Use
  Company Number: None

PATIENT
  Age: 81 Year
  Sex: Male
  Weight: 89.1 kg

DRUGS (1)
  1. GABAPENTIN [Suspect]
     Dosage: 600 MG TID PO
     Route: 048
     Dates: start: 20090722, end: 20091020

REACTIONS (1)
  - RASH [None]
